FAERS Safety Report 4517860-6 (Version None)
Quarter: 2004Q4

REPORT INFORMATION
  Report Type: 
  Country: None (occurrence: None)
  Receive Date: 20041203
  Receipt Date: 20040608
  Transmission Date: 20050328
  Serious: No
  Sender: FDA-Public Use
  Company Number: US-BRISTOL-MYERS SQUIBB COMPANY-12608766

PATIENT
  Age: 61 Year
  Sex: Male
  Weight: 77 kg

DRUGS (3)
  1. PROLIXIN [Suspect]
     Indication: SCHIZOPHRENIA
     Dosage: THERAPY TO DATE:  SEPT/OCT-2003.
     Route: 048
     Dates: start: 19730101, end: 20030101
  2. TOPROL-XL [Concomitant]
  3. ATIVAN [Concomitant]

REACTIONS (1)
  - ASTHENIA [None]
